FAERS Safety Report 9397536 (Version 2)
Quarter: 2013Q3

REPORT INFORMATION
  Report Type: Spontaneous
  Country: TW (occurrence: TW)
  Receive Date: 20130712
  Receipt Date: 20130725
  Transmission Date: 20140515
  Serious: Yes (Other)
  Sender: FDA-Public Use
  Company Number: TW-SANOFI-AVENTIS-2013SA069849

PATIENT
  Age: 70 Year
  Sex: Female

DRUGS (3)
  1. TAXOTERE [Suspect]
     Indication: METASTASES TO LUNG
     Dosage: SYSTEMIC ROUTE
     Route: 065
  2. CISPLATIN [Concomitant]
     Indication: METASTASES TO LUNG
  3. GEMZAR [Concomitant]
     Indication: METASTASES TO LUNG

REACTIONS (1)
  - Pneumothorax [Recovered/Resolved]
